FAERS Safety Report 24899072 (Version 2)
Quarter: 2025Q1

REPORT INFORMATION
  Report Type: Spontaneous
  Country: CN (occurrence: CN)
  Receive Date: 20250129
  Receipt Date: 20250203
  Transmission Date: 20250409
  Serious: Yes (Other)
  Sender: SANOFI AVENTIS
  Company Number: CN-SA-2025SA013762

PATIENT
  Age: 68 Year
  Sex: Male

DRUGS (5)
  1. DUPIXENT [Suspect]
     Active Substance: DUPILUMAB
     Indication: Dermatitis atopic
     Dates: start: 20220420
  2. DUPIXENT [Suspect]
     Active Substance: DUPILUMAB
     Dates: start: 20220506
  3. DUPIXENT [Suspect]
     Active Substance: DUPILUMAB
     Dates: start: 20220606
  4. DUPIXENT [Suspect]
     Active Substance: DUPILUMAB
     Dates: start: 20220706, end: 202208
  5. MOMETASONE FUROATE [Concomitant]
     Active Substance: MOMETASONE FUROATE

REACTIONS (9)
  - Corneal neovascularisation [Unknown]
  - Ulcerative keratitis [Recovered/Resolved]
  - Corneal opacity [Recovered/Resolved]
  - Foreign body sensation in eyes [Recovered/Resolved]
  - Lacrimation increased [Recovered/Resolved]
  - Corneal oedema [Recovered/Resolved]
  - Photophobia [Recovered/Resolved]
  - Conjunctival hyperaemia [Recovered/Resolved]
  - Dry eye [Unknown]

NARRATIVE: CASE EVENT DATE: 20220101
